FAERS Safety Report 13746158 (Version 1)
Quarter: 2017Q3

REPORT INFORMATION
  Report Type: Spontaneous
  Country: US (occurrence: US)
  Receive Date: 20170712
  Receipt Date: 20170712
  Transmission Date: 20171127
  Serious: Yes (Other)
  Sender: FDA-Public Use
  Company Number: None

PATIENT
  Age: 60 Year
  Sex: Female
  Weight: 53.55 kg

DRUGS (7)
  1. VITAMIN E [Concomitant]
     Active Substance: .ALPHA.-TOCOPHEROL
  2. MAGNESIUM [Concomitant]
     Active Substance: MAGNESIUM
  3. VITAMIN A [Concomitant]
     Active Substance: VITAMIN A
  4. VITAMIN B [Concomitant]
     Active Substance: VITAMIN B
  5. LORAZAPAM [Suspect]
     Active Substance: LORAZEPAM
     Indication: INSOMNIA
     Dosage: ?          QUANTITY:1 TABLET(S);?
     Route: 048
     Dates: start: 20170608, end: 20170710
  6. VITAMIN C [Concomitant]
     Active Substance: ASCORBIC ACID
  7. VITAMIN D [Concomitant]
     Active Substance: CHOLECALCIFEROL

REACTIONS (9)
  - Ulcer [None]
  - Nausea [None]
  - Product formulation issue [None]
  - Decreased activity [None]
  - Nervousness [None]
  - Fatigue [None]
  - Crying [None]
  - Insomnia [None]
  - Fear [None]

NARRATIVE: CASE EVENT DATE: 20170608
